FAERS Safety Report 6691262-9 (Version None)
Quarter: 2010Q2

REPORT INFORMATION
  Report Type: 
  Country: None (occurrence: None)
  Receive Date: 20100422
  Receipt Date: 20100412
  Transmission Date: 20101027
  Serious: Yes (Other)
  Sender: FDA-Public Use
  Company Number: US-ASTRAZENECA-2010SE02020

PATIENT
  Sex: Female

DRUGS (14)
  1. SEROQUEL [Suspect]
     Route: 048
     Dates: start: 20020325
  2. ASPIRIN [Concomitant]
     Dates: start: 20070824
  3. LISINOPRIL [Concomitant]
     Dates: start: 20070824
  4. LIPITOR [Concomitant]
     Dates: start: 20070824
  5. GABAPENTIN [Concomitant]
     Dates: start: 20070824
  6. PLAVIX [Concomitant]
  7. ATENOLOL [Concomitant]
  8. ISOSORBIDE MONONITRATE [Concomitant]
  9. CLONIDINE HCL [Concomitant]
  10. HYDROCHLOROTHIAZIDE [Concomitant]
  11. NITROGLYCERIN [Concomitant]
     Route: 060
  12. NORVASC [Concomitant]
  13. CYMBALTA [Concomitant]
  14. VITAMIN D [Concomitant]
     Dosage: 5000 UNIT CAPS 1 TAB EVERY 2 WEEKS

REACTIONS (2)
  - NEUROPATHY PERIPHERAL [None]
  - TYPE 2 DIABETES MELLITUS [None]
